FAERS Safety Report 7586469-2 (Version None)
Quarter: 2011Q3

REPORT INFORMATION
  Report Type: 
  Country: None (occurrence: None)
  Receive Date: 20110701
  Receipt Date: 20110602
  Transmission Date: 20111222
  Serious: Yes (Hospitalization, Other)
  Sender: FDA-Public Use
  Company Number: US-BAYER-2011-007241

PATIENT
  Age: 46 Year
  Sex: Female
  Weight: 68.027 kg

DRUGS (3)
  1. NEXIUM [Concomitant]
  2. ZITHROMAX [Concomitant]
  3. YASMIN [Suspect]
     Indication: CONTRACEPTION
     Dosage: UNK
     Route: 048
     Dates: start: 20020301, end: 20091101

REACTIONS (5)
  - CHOLECYSTITIS [None]
  - CHOLECYSTITIS ACUTE [None]
  - ABDOMINAL PAIN [None]
  - MENTAL DISORDER [None]
  - PAIN [None]
